FAERS Safety Report 5147600-1 (Version None)
Quarter: 2006Q4

REPORT INFORMATION
  Report Type: 
  Country: None (occurrence: None)
  Receive Date: 20061110
  Receipt Date: 20061031
  Transmission Date: 20070319
  Serious: Yes (Death, Life-Threatening, Other)
  Sender: FDA-Public Use
  Company Number: GB-JNJFOC-20060603178

PATIENT
  Sex: Male
  Weight: 67 kg

DRUGS (4)
  1. REMICADE [Suspect]
     Indication: RHEUMATOID ARTHRITIS
     Route: 042
  2. CO-PROXAMOL [Concomitant]
     Route: 065
  3. ACETAMINOPHEN [Concomitant]
     Route: 065
  4. ZANTAC [Concomitant]
     Route: 065

REACTIONS (1)
  - ARTERIOSCLEROSIS CORONARY ARTERY [None]
